FAERS Safety Report 16873728 (Version 1)
Quarter: 2019Q4

REPORT INFORMATION
  Report Type: Spontaneous
  Country: PT (occurrence: PT)
  Receive Date: 20191001
  Receipt Date: 20191001
  Transmission Date: 20200122
  Serious: Yes (Other)
  Sender: FDA-Public Use
  Company Number: PT-MYLANLABS-2019M1091248

PATIENT
  Age: 42 Year
  Sex: Male

DRUGS (2)
  1. RALTEGRAVIR. [Suspect]
     Active Substance: RALTEGRAVIR
     Indication: HIV INFECTION
     Dosage: UNK
     Route: 065
     Dates: start: 2010
  2. EMTRICITABINE/TENOFOVIR DISOPROXIL FUMARATE [Suspect]
     Active Substance: EMTRICITABINE\TENOFOVIR DISOPROXIL FUMARATE
     Indication: HIV INFECTION
     Dosage: UNK
     Route: 065
     Dates: start: 2010

REACTIONS (8)
  - Polydipsia [Recovering/Resolving]
  - Gynaecomastia [Unknown]
  - Hypothyroidism [Recovering/Resolving]
  - Polyuria [Recovering/Resolving]
  - Loss of libido [Recovering/Resolving]
  - Secondary hypogonadism [Recovering/Resolving]
  - Erectile dysfunction [Unknown]
  - Diabetes insipidus [Recovering/Resolving]
